FAERS Safety Report 5085533-X (Version None)
Quarter: 2006Q3

REPORT INFORMATION
  Report Type: 
  Country: None (occurrence: None)
  Receive Date: 20060814
  Receipt Date: 20060731
  Transmission Date: 20061208
  Serious: Yes (Other)
  Sender: FDA-Public Use
  Company Number: CHPA2006US07077

PATIENT
  Age: 53 Year
  Sex: Female
  Weight: 81.6 kg

DRUGS (1)
  1. NICOTINE [Suspect]
     Indication: SMOKING CESSATION THERAPY
     Dosage: 21 MG, ONCE/SINGLE, TRANSDERMAL
     Route: 062
     Dates: start: 20060719, end: 20060719

REACTIONS (10)
  - DIZZINESS [None]
  - HEAD DISCOMFORT [None]
  - HYPERHIDROSIS [None]
  - MALAISE [None]
  - MUSCULOSKELETAL DISCOMFORT [None]
  - NAUSEA [None]
  - NERVOUSNESS [None]
  - RETCHING [None]
  - SYNCOPE [None]
  - VOMITING [None]
